FAERS Safety Report 20352414 (Version 1)
Quarter: 2022Q1

REPORT INFORMATION
  Report Type: Spontaneous
  Country: US (occurrence: None)
  Receive Date: 20220118
  Receipt Date: 20220118
  Transmission Date: 20220423
  Serious: Yes (Disabling)
  Sender: FDA-Public Use
  Company Number: None

PATIENT
  Age: 59 Year
  Sex: Female
  Weight: 58.95 kg

DRUGS (6)
  1. DOTAREM [Suspect]
     Active Substance: GADOTERATE MEGLUMINE
  2. SIMVASTATIN [Concomitant]
     Active Substance: SIMVASTATIN
  3. UNITHROID [Concomitant]
     Active Substance: LEVOTHYROXINE SODIUM
  4. CALCIUM [Concomitant]
     Active Substance: CALCIUM
  5. VITAMIN D NOS [Concomitant]
     Active Substance: VITAMIN D NOS
  6. VITAMINS [Concomitant]
     Active Substance: VITAMINS

REACTIONS (8)
  - Paraesthesia [None]
  - Hypoaesthesia [None]
  - Tinnitus [None]
  - Ocular hyperaemia [None]
  - Palpitations [None]
  - Heart rate irregular [None]
  - Neuropathy peripheral [None]
  - Impaired healing [None]

NARRATIVE: CASE EVENT DATE: 20191105
